FAERS Safety Report 9406509 (Version 1)
Quarter: 2013Q3

REPORT INFORMATION
  Report Type: Spontaneous
  Country: US (occurrence: US)
  Receive Date: 20130718
  Receipt Date: 20130718
  Transmission Date: 20140515
  Serious: Yes (Hospitalization)
  Sender: FDA-Public Use
  Company Number: US-BRISTOL-MYERS SQUIBB COMPANY-19118942

PATIENT
  Sex: Female

DRUGS (2)
  1. METFORMIN HCL [Suspect]
  2. LANTUS [Suspect]

REACTIONS (1)
  - Transient ischaemic attack [Unknown]
